FAERS Safety Report 25649987 (Version 2)
Quarter: 2025Q3

REPORT INFORMATION
  Report Type: Spontaneous
  Country: EU (occurrence: EU)
  Receive Date: 20250806
  Receipt Date: 20250820
  Transmission Date: 20251021
  Serious: Yes (Other)
  Sender: CLINIGEN
  Company Number: EU-EMA-DD-20250718-7482715-132439

PATIENT

DRUGS (19)
  1. FOSCARNET SODIUM [Suspect]
     Active Substance: FOSCARNET SODIUM
     Indication: Cytomegalovirus chorioretinitis
     Route: 065
  2. LETERMOVIR [Suspect]
     Active Substance: LETERMOVIR
     Indication: Cytomegalovirus chorioretinitis
  3. GANCICLOVIR [Suspect]
     Active Substance: GANCICLOVIR
     Indication: Cytomegalovirus chorioretinitis
     Route: 065
  4. GANCICLOVIR [Suspect]
     Active Substance: GANCICLOVIR
     Indication: Cytomegalovirus chorioretinitis
     Route: 065
  5. GANCICLOVIR [Suspect]
     Active Substance: GANCICLOVIR
     Route: 065
  6. IMMUNE GLOBULIN NOS [Suspect]
     Active Substance: IMMUNE GLOBULIN NOS
     Indication: Cytomegalovirus chorioretinitis
     Route: 065
  7. BIKTARVY [Suspect]
     Active Substance: BICTEGRAVIR SODIUM\EMTRICITABINE\TENOFOVIR ALAFENAMIDE FUMARATE
     Indication: HIV infection
     Route: 065
  8. CIDOFOVIR [Suspect]
     Active Substance: CIDOFOVIR
     Indication: Cytomegalovirus chorioretinitis
     Route: 065
  9. CIDOFOVIR [Suspect]
     Active Substance: CIDOFOVIR
     Route: 065
  10. CLARITHROMYCIN [Suspect]
     Active Substance: CLARITHROMYCIN
     Indication: Cytomegalovirus chorioretinitis
     Route: 065
  11. COTRIMOXAZOLE [Suspect]
     Active Substance: SULFAMETHOXAZOLE\TRIMETHOPRIM
     Indication: Cytomegalovirus chorioretinitis
     Route: 065
  12. ETHAMBUTOL [Suspect]
     Active Substance: ETHAMBUTOL HYDROCHLORIDE
     Indication: Cytomegalovirus chorioretinitis
     Route: 065
  13. VALGANCICLOVIR [Suspect]
     Active Substance: VALGANCICLOVIR
     Indication: Cytomegalovirus chorioretinitis
     Route: 065
  14. VALGANCICLOVIR [Suspect]
     Active Substance: VALGANCICLOVIR
     Indication: Cytomegalovirus chorioretinitis
     Route: 065
  15. VALGANCICLOVIR [Suspect]
     Active Substance: VALGANCICLOVIR
     Route: 065
  16. LEVOFLOXACIN [Suspect]
     Active Substance: LEVOFLOXACIN
     Indication: Cytomegalovirus chorioretinitis
     Route: 065
  17. BIKTARVY [Concomitant]
     Active Substance: BICTEGRAVIR SODIUM\EMTRICITABINE\TENOFOVIR ALAFENAMIDE FUMARATE
     Indication: Cytomegalovirus chorioretinitis
     Route: 065
  18. GANCICLOVIR [Suspect]
     Active Substance: GANCICLOVIR
     Indication: Cytomegalovirus chorioretinitis
  19. GANCICLOVIR [Suspect]
     Active Substance: GANCICLOVIR

REACTIONS (5)
  - Cytomegalovirus chorioretinitis [Unknown]
  - Cytomegalovirus viraemia [Unknown]
  - Pancytopenia [Unknown]
  - Multiple-drug resistance [Unknown]
  - Off label use [Unknown]
